FAERS Safety Report 8523171-4 (Version None)
Quarter: 2012Q3

REPORT INFORMATION
  Report Type: 
  Country: None (occurrence: None)
  Receive Date: 20120713
  Receipt Date: 20120713
  Transmission Date: 20120928
  Serious: No
  Sender: FDA-Public Use
  Company Number: None

PATIENT
  Sex: Female
  Weight: 57.1532 kg

DRUGS (1)
  1. MIRENA [Suspect]
     Indication: MENORRHAGIA
     Dates: start: 20120510, end: 20120606

REACTIONS (8)
  - FATIGUE [None]
  - ACNE [None]
  - WEIGHT INCREASED [None]
  - ABDOMINAL PAIN [None]
  - DISCOMFORT [None]
  - ABDOMINAL DISTENSION [None]
  - ALOPECIA [None]
  - MOOD SWINGS [None]
